FAERS Safety Report 6699327-2 (Version None)
Quarter: 2010Q2

REPORT INFORMATION
  Report Type: 
  Country: None (occurrence: None)
  Receive Date: 20100427
  Receipt Date: 20100414
  Transmission Date: 20101027
  Serious: Yes (Other)
  Sender: FDA-Public Use
  Company Number: CA-GENENTECH-299813

PATIENT
  Sex: Male
  Weight: 105 kg

DRUGS (1)
  1. XOLAIR [Suspect]
     Indication: ASTHMA
     Dosage: 375 MG, Q2W
     Route: 058
     Dates: start: 20100129

REACTIONS (4)
  - BREATH SOUNDS ABNORMAL [None]
  - DYSPNOEA [None]
  - LUNG INFECTION [None]
  - WHEEZING [None]
